FAERS Safety Report 24385998 (Version 1)
Quarter: 2024Q4

REPORT INFORMATION
  Report Type: Spontaneous
  Country: US (occurrence: None)
  Receive Date: 20241001
  Receipt Date: 20241001
  Transmission Date: 20250114
  Serious: Yes (Hospitalization)
  Sender: Public
  Company Number: None

PATIENT
  Age: 36 Year
  Sex: Female
  Weight: 90 kg

DRUGS (5)
  1. VYVANSE [Suspect]
     Active Substance: LISDEXAMFETAMINE DIMESYLATE
     Indication: Attention deficit hyperactivity disorder
     Dates: start: 20230101, end: 20240801
  2. BUSPAR [Suspect]
     Active Substance: BUSPIRONE HYDROCHLORIDE
  3. SERTRALINE [Concomitant]
     Active Substance: SERTRALINE HYDROCHLORIDE
  4. Women^s daily vitamin [Concomitant]
  5. MELATONIN [Concomitant]
     Active Substance: MELATONIN

REACTIONS (3)
  - Product substitution issue [None]
  - Therapeutic response changed [None]
  - Psychotic disorder [None]

NARRATIVE: CASE EVENT DATE: 20240801
